FAERS Safety Report 17014622 (Version 1)
Quarter: 2020Q3

REPORT INFORMATION
  Report Type: Spontaneous
  Country: GB (occurrence: GB)
  Receive Date: 20191111
  Receipt Date: 20191111
  Transmission Date: 20201104
  Serious: Yes (Hospitalization, Other)
  Sender: FDA-Public Use
  Company Number: GB-SA-2019SA305593

PATIENT
  Age: 45 Year
  Sex: Female

DRUGS (15)
  1. PERTUZUMAB. [Suspect]
     Active Substance: PERTUZUMAB
     Dosage: 420 MG, Q3W MAINTAINANCE DOSE
     Route: 042
     Dates: start: 20150825, end: 20151117
  2. DENOSUMAB [Concomitant]
     Active Substance: DENOSUMAB
     Dosage: 120 MG, QM
     Route: 058
     Dates: start: 20160127
  3. TRASTUZUMAB. [Suspect]
     Active Substance: TRASTUZUMAB
     Indication: BREAST CANCER METASTATIC
     Dosage: 483 MG, QD LOADING DOSE
     Route: 042
     Dates: start: 20150803, end: 20150803
  4. EXEMESTANE. [Suspect]
     Active Substance: EXEMESTANE
     Indication: BREAST CANCER METASTATIC
     Dosage: 25 MG, QD
     Route: 048
     Dates: start: 20150518
  5. IBANDRONIC ACID. [Suspect]
     Active Substance: IBANDRONIC ACID
     Indication: METASTASES TO BONE
     Dosage: 50 MG, QD
     Route: 048
     Dates: start: 20150518
  6. TRASTUZUMAB. [Suspect]
     Active Substance: TRASTUZUMAB
     Dosage: 600 MG, QD LOADING DOSE
     Route: 042
     Dates: start: 20151217, end: 20160308
  7. PERTUZUMAB. [Suspect]
     Active Substance: PERTUZUMAB
     Indication: BREAST CANCER METASTATIC
     Dosage: 840 MG, UNK ONE CYCLE (LOADING DOSE)
     Route: 042
     Dates: start: 20150804, end: 20150804
  8. PERTUZUMAB. [Suspect]
     Active Substance: PERTUZUMAB
     Dosage: 420 MG, Q3W MAINTAINANCE DOSE
     Route: 042
     Dates: start: 20151217, end: 20160308
  9. DEXAMETHASONE. [Concomitant]
     Active Substance: DEXAMETHASONE
     Dosage: FOR 3 DAYS EVERY 3 WEEKS
     Route: 048
     Dates: start: 20150803
  10. TRASTUZUMAB;VORHYALURONIDASE ALFA [Suspect]
     Active Substance: HYALURONIDASE (HUMAN RECOMBINANT)\TRASTUZUMAB
     Indication: BREAST CANCER METASTATIC
     Dosage: STOPPED
     Route: 058
  11. TRASTUZUMAB;VORHYALURONIDASE ALFA [Suspect]
     Active Substance: HYALURONIDASE (HUMAN RECOMBINANT)\TRASTUZUMAB
     Dosage: 600 MG, Q3W MAINTAINANCE DOSE
     Dates: start: 20150825, end: 20151117
  12. DOCETAXEL. [Suspect]
     Active Substance: DOCETAXEL
     Indication: BREAST CANCER METASTATIC
     Dosage: 120 MG, Q3W
     Route: 042
     Dates: start: 20150804, end: 20151117
  13. TRASTUZUMAB;VORHYALURONIDASE ALFA [Suspect]
     Active Substance: HYALURONIDASE (HUMAN RECOMBINANT)\TRASTUZUMAB
     Dosage: 600 MG, Q3W
     Route: 058
     Dates: start: 20160623
  14. PERTUZUMAB. [Suspect]
     Active Substance: PERTUZUMAB
     Dosage: 840 MG, UNK LOADING DOSE
     Route: 042
     Dates: start: 20160623, end: 20160623
  15. PERTUZUMAB. [Suspect]
     Active Substance: PERTUZUMAB
     Dosage: 420 MG, QD MAINTENANCE DOSE
     Route: 042
     Dates: start: 20160715

REACTIONS (15)
  - Alopecia [Recovered/Resolved]
  - Gingival swelling [Recovered/Resolved]
  - Anaemia [Recovered/Resolved]
  - Epistaxis [Recovered/Resolved]
  - Lymphoedema [Recovered/Resolved]
  - Ejection fraction decreased [Recovered/Resolved]
  - Device related infection [Recovered/Resolved]
  - Fatigue [Recovered/Resolved]
  - Hot flush [Unknown]
  - Fatigue [Recovered/Resolved]
  - Gastrooesophageal reflux disease [Recovered/Resolved]
  - Mucosal inflammation [Recovered/Resolved]
  - Influenza like illness [Recovered/Resolved]
  - Diarrhoea [Recovered/Resolved]
  - Rash [Recovered/Resolved]

NARRATIVE: CASE EVENT DATE: 201508
